FAERS Safety Report 21935003 (Version 1)
Quarter: 2023Q1

REPORT INFORMATION
  Report Type: Spontaneous
  Country: US (occurrence: US)
  Receive Date: 20230201
  Receipt Date: 20230201
  Transmission Date: 20230417
  Serious: Yes (Other)
  Sender: FDA-Public Use
  Company Number: US-ORGANON-O2301USA002619

PATIENT
  Age: 18 Year
  Sex: Female
  Weight: 92.53 kg

DRUGS (1)
  1. NEXPLANON [Suspect]
     Active Substance: ETONOGESTREL
     Indication: Contraception
     Dosage: 1 IMPLANT OF 68 MILLIGRAM (MG)
     Route: 059
     Dates: start: 20221027

REACTIONS (16)
  - Loss of consciousness [Unknown]
  - Pregnancy with implant contraceptive [Not Recovered/Not Resolved]
  - Proctalgia [Unknown]
  - Peripheral swelling [Unknown]
  - Pollakiuria [Unknown]
  - Feeling abnormal [Not Recovered/Not Resolved]
  - Dyspepsia [Unknown]
  - Vulvovaginal pain [Unknown]
  - Pain in extremity [Unknown]
  - Unintended pregnancy [Not Recovered/Not Resolved]
  - Vaginal haemorrhage [Unknown]
  - Headache [Unknown]
  - Nausea [Unknown]
  - Hypersomnia [Unknown]
  - Pyrexia [Unknown]
  - Dizziness [Unknown]

NARRATIVE: CASE EVENT DATE: 20230101
